FAERS Safety Report 24923408 (Version 1)
Quarter: 2025Q1

REPORT INFORMATION
  Report Type: Spontaneous
  Country: US (occurrence: None)
  Receive Date: 20250204
  Receipt Date: 20250204
  Transmission Date: 20250409
  Serious: Yes (Hospitalization)
  Sender: FDA-CTU
  Company Number: None

PATIENT
  Age: 70 Year
  Sex: Female

DRUGS (11)
  1. AVONEX [Suspect]
     Active Substance: INTERFERON BETA-1A
     Indication: Multiple sclerosis
     Dosage: FREQUENCY : WEEKLY;?
     Route: 058
     Dates: start: 20220617
  2. AMLODIPINE [Concomitant]
     Active Substance: AMLODIPINE BESYLATE
  3. CAL-MAG-ZINC TAB -D [Concomitant]
  4. CENTRUM SILV TAB 50+WOMEN [Concomitant]
  5. ESCITALOPRAM [Concomitant]
     Active Substance: ESCITALOPRAM OXALATE
  6. ESTER-C TAB 500MG [Concomitant]
  7. FLOMAX [Concomitant]
     Active Substance: TAMSULOSIN HYDROCHLORIDE
  8. LEG CRAMPS TAB [Concomitant]
  9. LOSARTAN POT TAB 50MG [Concomitant]
  10. PREDNISONE [Concomitant]
     Active Substance: PREDNISONE
  11. ROSUVASTATIN [Concomitant]
     Active Substance: ROSUVASTATIN

REACTIONS (2)
  - Pneumonia [None]
  - Influenza [None]

NARRATIVE: CASE EVENT DATE: 20241231
